FAERS Safety Report 12492465 (Version 1)
Quarter: 2016Q2

REPORT INFORMATION
  Report Type: Not Available
  Country: None (occurrence: US)
  Receive Date: 20160623
  Receipt Date: 20160623
  Transmission Date: 20160815
  Serious: No
  Sender: FDA-Public Use
  Company Number: US-AKORN-31304

PATIENT
  Age: 87 Year
  Sex: Female

DRUGS (1)
  1. SUBLIMAZE [Suspect]
     Active Substance: FENTANYL CITRATE

REACTIONS (2)
  - Hypersensitivity [None]
  - Pruritus [Unknown]
